FAERS Safety Report 8963236 (Version 1)
Quarter: 2012Q4

REPORT INFORMATION
  Report Type: Report from Study
  Country: FR (occurrence: FR)
  Receive Date: 20121214
  Receipt Date: 20121214
  Transmission Date: 20130627
  Serious: Yes (Life-Threatening)
  Sender: FDA-Public Use
  Company Number: FR-PFIZER INC-2012312912

PATIENT
  Age: 61 Year
  Sex: Female
  Weight: 53 kg

DRUGS (4)
  1. IRINOTECAN HCL [Suspect]
     Indication: METASTATIC COLORECTAL CANCER
     Dosage: 280 mg/kg, (280 mg, 1 in 2 weeks)
     Route: 041
     Dates: start: 20100518, end: 20100601
  2. FLUOROURACIL [Suspect]
     Indication: METASTATIC COLORECTAL CANCER
     Dosage: 400 mg/m2 (620 mg, 1 in 2 weeks)
     Route: 040
     Dates: start: 20100518, end: 20100601
  3. FLUOROURACIL [Suspect]
     Dosage: 2400 mg/m2 (3750 mg, 1 in 2 weeks)
     Route: 041
     Dates: start: 20100518, end: 20100601
  4. CALCIUM LEVOFOLINATE [Concomitant]
     Indication: METASTATIC COLORECTAL CANCER
     Dosage: 310 mg, UNK
     Route: 041
     Dates: start: 20100518, end: 20100601

REACTIONS (1)
  - Febrile neutropenia [Recovered/Resolved]
